FAERS Safety Report 14997361 (Version 2)
Quarter: 2018Q2

REPORT INFORMATION
  Report Type: Spontaneous
  Country: PE (occurrence: PE)
  Receive Date: 20180611
  Receipt Date: 20180611
  Transmission Date: 20180711
  Serious: Yes (Life-Threatening, Hospitalization)
  Sender: FDA-Public Use
  Company Number: PHHY2018PE019655

PATIENT
  Age: 32 Year
  Sex: Female

DRUGS (1)
  1. CICLOSPORIN [Suspect]
     Active Substance: CYCLOSPORINE
     Indication: APLASTIC ANAEMIA
     Dosage: UNK
     Route: 065

REACTIONS (12)
  - Pneumonia [Recovering/Resolving]
  - Platelet count decreased [Unknown]
  - Extravasation blood [Unknown]
  - Haemoglobin decreased [Unknown]
  - Blindness [Recovering/Resolving]
  - Detachment of retinal pigment epithelium [Unknown]
  - Eye haemorrhage [Unknown]
  - Retinal exudates [Unknown]
  - Retinal haemorrhage [Unknown]
  - Therapy non-responder [Unknown]
  - Product use in unapproved indication [Unknown]
  - Visual acuity reduced [Recovering/Resolving]
